FAERS Safety Report 4785604-9 (Version None)
Quarter: 2005Q4

REPORT INFORMATION
  Report Type: 
  Country: None (occurrence: None)
  Receive Date: 20051003
  Receipt Date: 20050808
  Transmission Date: 20060501
  Serious: Yes (Death)
  Sender: FDA-Public Use
  Company Number: NZ-BOEHRINGER INGELHEIM PHARMACEUTICALS, INC.-2005-BP-13465AU

PATIENT
  Sex: Female
  Weight: 67 kg

DRUGS (8)
  1. SPIRIVA [Suspect]
     Indication: CHRONIC OBSTRUCTIVE PULMONARY DISEASE
     Route: 055
     Dates: start: 20050414, end: 20050506
  2. WARFARIN SODIUM [Concomitant]
  3. DIGOXIN [Concomitant]
  4. FUROSEMIDE [Concomitant]
  5. GLICLAZIDE [Concomitant]
  6. PREDNISOLONE [Concomitant]
  7. CILAZAPRIL [Concomitant]
  8. ALBUTEROL SULFATE HFA [Concomitant]

REACTIONS (1)
  - MYOCARDIAL INFARCTION [None]
